FAERS Safety Report 4414165-9 (Version None)
Quarter: 2004Q3

REPORT INFORMATION
  Report Type: 
  Country: None (occurrence: None)
  Receive Date: 20040803
  Receipt Date: 20040722
  Transmission Date: 20050211
  Serious: Yes (Hospitalization)
  Sender: FDA-Public Use
  Company Number: US-AMGEN-US084340

PATIENT
  Sex: Male
  Weight: 84 kg

DRUGS (11)
  1. SENSIPAR [Suspect]
     Indication: HYPERPARATHYROIDISM SECONDARY
     Route: 048
     Dates: start: 20040629
  2. ZEMPLAR (ABBOTT LABORATORIES) [Concomitant]
  3. MINOXIDIL [Concomitant]
  4. ZANTAC [Concomitant]
  5. ATARAX [Concomitant]
  6. CLONIDINE HCL [Concomitant]
  7. DARVOCET-N 100 [Concomitant]
  8. BENADRYL [Concomitant]
  9. ATENOLOL [Concomitant]
  10. EPOGEN [Concomitant]
  11. TETRACYCLINE [Concomitant]

REACTIONS (2)
  - HYPOCALCAEMIA [None]
  - PANCREATITIS ACUTE [None]
